FAERS Safety Report 9617002 (Version 2)
Quarter: 2013Q4

REPORT INFORMATION
  Report Type: Spontaneous
  Country: US (occurrence: US)
  Receive Date: 20131011
  Receipt Date: 20131011
  Transmission Date: 20140711
  Serious: No
  Sender: FDA-Public Use
  Company Number: US-BAYER-2013-123064

PATIENT
  Age: 42 Year
  Sex: Male
  Weight: 104.31 kg

DRUGS (6)
  1. BETASERON [Suspect]
     Dosage: 0.25 MG, QOD
     Route: 058
  2. PERCOCET [Concomitant]
     Dosage: 10 -325MG
  3. OXYCONTIN [Concomitant]
  4. MODAFINIL [Concomitant]
  5. CRANBERRY [Concomitant]
  6. TIZANIDINE [Concomitant]

REACTIONS (2)
  - Injection site atrophy [Unknown]
  - Injection site scar [Unknown]
